FAERS Safety Report 8218762-4 (Version None)
Quarter: 2012Q1

REPORT INFORMATION
  Report Type: 
  Country: None (occurrence: None)
  Receive Date: 20120319
  Receipt Date: 20120312
  Transmission Date: 20120608
  Serious: Yes (Other)
  Sender: FDA-Public Use
  Company Number: PHEH2010US03488

PATIENT
  Sex: Female

DRUGS (18)
  1. RANITIDINE [Concomitant]
  2. IMODIUM [Concomitant]
  3. AMOXICILLIN [Concomitant]
  4. PEPCID [Concomitant]
  5. TYLENOL [Concomitant]
  6. OMEPRAZOLE [Concomitant]
  7. NEXIUM [Concomitant]
  8. AUGMENTIN '125' [Concomitant]
  9. CLARITHROMYCIN [Concomitant]
  10. MORPHINE [Concomitant]
  11. FERROUS SULFATE TAB [Concomitant]
  12. PAMIDRONATE DISODIUM [Suspect]
  13. PANTOPRAZOLE [Concomitant]
  14. ZOCOR [Concomitant]
     Dates: start: 20100413
  15. LISINOPRIL [Concomitant]
  16. LORTAB [Concomitant]
  17. OMEGA [Concomitant]
  18. AREDIA [Suspect]

REACTIONS (44)
  - OSTEONECROSIS OF JAW [None]
  - IMPAIRED HEALING [None]
  - DYSPEPSIA [None]
  - MULTIPLE MYELOMA [None]
  - OSTEOARTHRITIS [None]
  - ESSENTIAL HYPERTENSION [None]
  - DYSPHAGIA [None]
  - RENAL FAILURE CHRONIC [None]
  - DISABILITY [None]
  - OSTEITIS [None]
  - GENERAL PHYSICAL HEALTH DETERIORATION [None]
  - ANHEDONIA [None]
  - GASTROOESOPHAGEAL REFLUX DISEASE [None]
  - CATARACT [None]
  - OESOPHAGEAL STENOSIS [None]
  - PERIHEPATIC ABSCESS [None]
  - ARTHRITIS [None]
  - INJURY [None]
  - DIVERTICULUM [None]
  - URINARY TRACT INFECTION [None]
  - PAIN [None]
  - SWELLING [None]
  - CELLULITIS [None]
  - PEPTIC ULCER [None]
  - UPPER GASTROINTESTINAL HAEMORRHAGE [None]
  - PHARYNGEAL INFLAMMATION [None]
  - HELICOBACTER INFECTION [None]
  - MUSCULAR WEAKNESS [None]
  - ANXIETY [None]
  - ABSCESS JAW [None]
  - HAEMATEMESIS [None]
  - OSTEOPOROSIS [None]
  - HYPERCHOLESTEROLAEMIA [None]
  - CHOLECYSTITIS ACUTE [None]
  - AORTIC ARTERIOSCLEROSIS [None]
  - DYSPNOEA [None]
  - BACK PAIN [None]
  - ABDOMINAL PAIN UPPER [None]
  - ANAEMIA [None]
  - ARTHRALGIA [None]
  - NASAL CONGESTION [None]
  - GASTRITIS [None]
  - HIATUS HERNIA [None]
  - CONSTIPATION [None]
